FAERS Safety Report 7770867-8 (Version None)
Quarter: 2011Q3

REPORT INFORMATION
  Report Type: 
  Country: None (occurrence: None)
  Receive Date: 20110922
  Receipt Date: 20101118
  Transmission Date: 20111222
  Serious: No
  Sender: FDA-Public Use
  Company Number: US-ASTRAZENECA-2010SE55342

PATIENT
  Age: 61 Year
  Sex: Female
  Weight: 66.7 kg

DRUGS (1)
  1. SEROQUEL [Suspect]
     Indication: BIPOLAR I DISORDER
     Route: 048
     Dates: start: 20100701, end: 20101101

REACTIONS (4)
  - INSOMNIA [None]
  - EMOTIONAL DISORDER [None]
  - DRUG DOSE OMISSION [None]
  - TEARFULNESS [None]
